FAERS Safety Report 9288826 (Version 1)
Quarter: 2013Q2

REPORT INFORMATION
  Report Type: Spontaneous
  Country: US (occurrence: None)
  Receive Date: 20130509
  Receipt Date: 20130509
  Transmission Date: 20140414
  Serious: Yes (Hospitalization)
  Sender: FDA-Public Use
  Company Number: 2013AP004857

PATIENT
  Age: 63 Year
  Sex: Female
  Weight: 77.11 kg

DRUGS (5)
  1. CLOPIDOGREL TABLETS USP [Suspect]
     Indication: ANTIPLATELET THERAPY
     Dates: end: 20121222
  2. HUMALOG [Concomitant]
  3. GABAPENTIN [Concomitant]
  4. LISINOPRIL [Concomitant]
  5. FUROSEMIDE [Concomitant]

REACTIONS (1)
  - Cerebrovascular accident [None]
